FAERS Safety Report 7081599-6 (Version None)
Quarter: 2010Q4

REPORT INFORMATION
  Report Type: 
  Country: None (occurrence: None)
  Receive Date: 20101103
  Receipt Date: 20101026
  Transmission Date: 20110411
  Serious: Yes (Hospitalization)
  Sender: FDA-Public Use
  Company Number: DE-CEPHALON-2010004738

PATIENT
  Sex: Male
  Weight: 65 kg

DRUGS (17)
  1. TREANDA [Suspect]
     Indication: MANTLE CELL LYMPHOMA
     Route: 042
     Dates: start: 20100728
  2. TREANDA [Suspect]
     Route: 042
     Dates: start: 20100922, end: 20100923
  3. RITUXIMAB [Suspect]
     Indication: MANTLE CELL LYMPHOMA
     Route: 042
     Dates: start: 20100727
  4. RITUXIMAB [Suspect]
     Route: 042
     Dates: start: 20100921
  5. RITUXIMAB [Suspect]
     Route: 042
     Dates: start: 20100922
  6. TEMSIROLIMUS [Suspect]
     Indication: MANTLE CELL LYMPHOMA
     Route: 042
     Dates: start: 20100729, end: 20100826
  7. TEMSIROLIMUS [Suspect]
     Route: 042
     Dates: start: 20100901
  8. ASPIRIN [Concomitant]
     Route: 048
     Dates: start: 20000101
  9. ACETAMINOPHEN [Concomitant]
     Route: 048
  10. CETIRIZINE HCL [Concomitant]
  11. CONCOR [Concomitant]
     Dates: start: 20000101
  12. ENALAPRIL MALEATE [Concomitant]
     Dates: start: 20000101
  13. FENISTIL [Concomitant]
  14. KEVATRIL [Concomitant]
  15. PANTOPRAZOLE SODIUM [Concomitant]
  16. SIMVABETA [Concomitant]
     Dates: start: 20030101
  17. ZYLORIC [Concomitant]

REACTIONS (4)
  - HYPERTENSIVE CRISIS [None]
  - PLEURAL EFFUSION [None]
  - PULMONARY CONGESTION [None]
  - PULMONARY OEDEMA [None]
